FAERS Safety Report 5914472-4 (Version None)
Quarter: 2008Q4

REPORT INFORMATION
  Report Type: 
  Country: None (occurrence: None)
  Receive Date: 20081009
  Receipt Date: 20080923
  Transmission Date: 20090506
  Serious: Yes (Hospitalization)
  Sender: FDA-Public Use
  Company Number: AU-GENENTECH-249044

PATIENT
  Sex: Female

DRUGS (1)
  1. MABTHERA [Suspect]
     Indication: NON-HODGKIN'S LYMPHOMA
     Dosage: UNK
     Route: 042

REACTIONS (4)
  - ERYTHROMELALGIA [None]
  - PERIPHERAL SENSORY NEUROPATHY [None]
  - TREMOR [None]
  - TYPE IV HYPERSENSITIVITY REACTION [None]
